FAERS Safety Report 7313916 (Version 7)
Quarter: 2012Q4

REPORT INFORMATION
  Report Type: 
  Country: CA (occurrence: CA)
  Receive Date: 20100310
  Receipt Date: 20120921
  Transmission Date: 20130627
  Serious: Yes (Death, Hospitalization, Other)
  Sender: FDA-Public Use
  Company Number: PHHY2010CA00977

PATIENT
  Age: 81 Year
  Sex: Female

DRUGS (2)
  1. SANDOSTATIN LAR [Suspect]
     Indication: CARCINOID TUMOUR
     Dosage: 30 mg, every 4 weeks
     Route: 030
     Dates: start: 20060404
  2. SANDOSTATIN LAR [Suspect]
     Dosage: 30 mg, every 4 weeks
     Route: 030
     Dates: start: 20120712

REACTIONS (9)
  - Death [Fatal]
  - Herpes zoster [Unknown]
  - Hallucination [Unknown]
  - Nasopharyngitis [Unknown]
  - Chest pain [Unknown]
  - Renal impairment [Unknown]
  - Abdominal pain [Unknown]
  - Diarrhoea [Unknown]
  - Dialysis [None]
